FAERS Safety Report 17235108 (Version 1)
Quarter: 2020Q1

REPORT INFORMATION
  Report Type: Spontaneous
  Country: JP (occurrence: JP)
  Receive Date: 20200106
  Receipt Date: 20200106
  Transmission Date: 20200409
  Serious: Yes (Hospitalization, Other)
  Sender: FDA-Public Use
  Company Number: JP-TEVA-2019-JP-1162918

PATIENT
  Age: 75 Year
  Sex: Male

DRUGS (3)
  1. 5-FLUROURACIL [Suspect]
     Active Substance: FLUOROURACIL
     Indication: OESOPHAGEAL SQUAMOUS CELL CARCINOMA
     Dosage: AS A PART OF DCF CHEMOTHERAPY; CONTINUOUS IV INFUSION SCHEDULED FOR 5 DAYS
     Route: 041
  2. DOCETAXEL. [Suspect]
     Active Substance: DOCETAXEL
     Indication: OESOPHAGEAL SQUAMOUS CELL CARCINOMA
     Dosage: AS A PART OF DCF CHEMOTHERAPY; IV DRIP; ONE DAY
     Route: 041
  3. CISPLATIN. [Suspect]
     Active Substance: CISPLATIN
     Indication: OESOPHAGEAL SQUAMOUS CELL CARCINOMA
     Dosage: AS A PART OF DCF CHEMOTHERAPY; IV DRIP; ONE DAY
     Route: 041

REACTIONS (2)
  - Oesophageal perforation [Unknown]
  - Pleural effusion [Recovered/Resolved]
